FAERS Safety Report 9310219 (Version 12)
Quarter: 2015Q4

REPORT INFORMATION
  Report Type: Report from Study
  Country: CA (occurrence: CA)
  Receive Date: 20130527
  Receipt Date: 20151128
  Transmission Date: 20160305
  Serious: Yes (Hospitalization, Other)
  Sender: FDA-Public Use
  Company Number: PHHY2013CA052260

PATIENT
  Age: 67 Year
  Sex: Male

DRUGS (2)
  1. METOPROLOL [Suspect]
     Active Substance: METOPROLOL
     Indication: PRODUCT USED FOR UNKNOWN INDICATION
     Route: 048
  2. SANDOSTATIN LAR DEPOT [Suspect]
     Active Substance: OCTREOTIDE ACETATE
     Indication: CROHN^S DISEASE
     Dosage: 20 MG, QMO
     Route: 030
     Dates: start: 20080601, end: 20150921

REACTIONS (8)
  - Back disorder [Unknown]
  - Nephrolithiasis [Unknown]
  - Crohn^s disease [Unknown]
  - Postoperative abscess [Unknown]
  - Small intestinal obstruction [Unknown]
  - Post procedural complication [Unknown]
  - Post procedural infection [Unknown]
  - Product use issue [Unknown]

NARRATIVE: CASE EVENT DATE: 20140911
